FAERS Safety Report 4767331-7 (Version None)
Quarter: 2005Q3

REPORT INFORMATION
  Report Type: 
  Country: None (occurrence: None)
  Receive Date: 20050913
  Receipt Date: 20050610
  Transmission Date: 20060218
  Serious: Yes (Hospitalization)
  Sender: FDA-Public Use
  Company Number: 2005UW09288

PATIENT
  Age: 16 Year
  Sex: Male
  Weight: 125.9 kg

DRUGS (3)
  1. QUETIAPINE FUMARATE [Suspect]
     Indication: BIPOLAR I DISORDER
     Dosage: 200 MG QAM; 200 MG AFTERNOON; 400 MG HS
     Route: 048
     Dates: start: 20050228, end: 20050613
  2. QUETIAPINE FUMARATE [Suspect]
     Route: 048
     Dates: start: 20050614, end: 20050621
  3. QUETIAPINE FUMARATE [Suspect]
     Dosage: 300 MG QAM; 300 MG 3PM; 200 MG HS
     Route: 048
     Dates: start: 20050622

REACTIONS (4)
  - AGGRESSION [None]
  - AGITATION [None]
  - BIPOLAR DISORDER [None]
  - DRUG INEFFECTIVE [None]
